FAERS Safety Report 24182735 (Version 1)
Quarter: 2024Q3

REPORT INFORMATION
  Report Type: Spontaneous
  Country: JP (occurrence: JP)
  Receive Date: 20240807
  Receipt Date: 20240807
  Transmission Date: 20241017
  Serious: Yes (Other)
  Sender: ASTELLAS
  Company Number: JP-ASTELLAS-2024JP005578

PATIENT
  Age: 8 Year
  Sex: Male
  Weight: 20.9 kg

DRUGS (6)
  1. TACROLIMUS [Suspect]
     Active Substance: TACROLIMUS
     Indication: Immunosuppressant drug therapy
     Dosage: 0.01 MG/KG, TWICE DAILY
     Route: 048
  2. PREDNISOLONE [Concomitant]
     Active Substance: PREDNISOLONE
     Indication: Immune-complex membranoproliferative glomerulonephritis
     Route: 065
  3. PREDNISOLONE [Concomitant]
     Active Substance: PREDNISOLONE
     Indication: Glomerulonephritis membranoproliferative
     Dosage: 1.3 MG/KG/ALT.DAY
     Route: 065
  4. PREDNISOLONE [Concomitant]
     Active Substance: PREDNISOLONE
     Indication: Kidney fibrosis
     Route: 065
  5. PREDNISOLONE [Concomitant]
     Active Substance: PREDNISOLONE
     Dosage: UNK UNK, UNKNOWN FREQ.
     Route: 065
  6. PREDNISOLONE [Concomitant]
     Active Substance: PREDNISOLONE
     Dosage: 0.1 MG/KG, ONCE DAILY
     Route: 065

REACTIONS (4)
  - Glomerulonephritis membranoproliferative [Recovering/Resolving]
  - Immune-complex membranoproliferative glomerulonephritis [Recovering/Resolving]
  - Disease recurrence [Recovering/Resolving]
  - Kidney fibrosis [Unknown]
